FAERS Safety Report 18197099 (Version 1)
Quarter: 2020Q3

REPORT INFORMATION
  Report Type: Spontaneous
  Country: US (occurrence: US)
  Receive Date: 20200826
  Receipt Date: 20200826
  Transmission Date: 20201103
  Serious: Yes (Other)
  Sender: FDA-Public Use
  Company Number: None

PATIENT
  Age: 62 Year
  Sex: Female
  Weight: 67.5 kg

DRUGS (4)
  1. CORAL CALCIUM [Concomitant]
     Active Substance: DIETARY SUPPLEMENT
  2. VITAMIN B12 [Concomitant]
     Active Substance: CYANOCOBALAMIN
  3. VITAMIN E [Concomitant]
     Active Substance: .ALPHA.-TOCOPHEROL
  4. CLINDAMYCIN. [Suspect]
     Active Substance: CLINDAMYCIN
     Indication: TOOTH INFECTION
     Dosage: ?          QUANTITY:56 CAPSULE(S);?
     Route: 048
     Dates: start: 20200627, end: 20200822

REACTIONS (8)
  - Blood pressure increased [None]
  - Rhinorrhoea [None]
  - Heart rate increased [None]
  - Chest discomfort [None]
  - Product substitution issue [None]
  - Tremor [None]
  - Nervousness [None]
  - Hot flush [None]

NARRATIVE: CASE EVENT DATE: 20200821
